FAERS Safety Report 7280351-6 (Version None)
Quarter: 2011Q1

REPORT INFORMATION
  Report Type: 
  Country: None (occurrence: None)
  Receive Date: 20110208
  Receipt Date: 20110127
  Transmission Date: 20110831
  Serious: Yes (Other)
  Sender: FDA-Public Use
  Company Number: US-ELI_LILLY_AND_COMPANY-US201012004162

PATIENT
  Sex: Female

DRUGS (14)
  1. FORTEO [Suspect]
     Indication: OSTEOPOROSIS
     Dosage: 20 UG, DAILY (1/D)
     Dates: start: 20101001, end: 20101213
  2. DARVOCET-N 100 [Concomitant]
  3. PLAVIX [Concomitant]
  4. NITROGLYCERIN [Concomitant]
     Dosage: UNK, AS NEEDED
  5. SERTRALINE HYDROCHLORIDE [Concomitant]
  6. ASPIRIN [Concomitant]
  7. VYTORIN [Concomitant]
  8. RESTORIL [Concomitant]
  9. BENICAR [Concomitant]
  10. OXYGEN [Concomitant]
     Dosage: UNK, EACH EVENING
  11. FLEXERIL [Concomitant]
  12. LASIX [Concomitant]
  13. ATENOLOL [Concomitant]
  14. PREVACID [Concomitant]

REACTIONS (7)
  - OSTEOPENIA [None]
  - BACK PAIN [None]
  - ARTHRALGIA [None]
  - GAIT DISTURBANCE [None]
  - DRUG DOSE OMISSION [None]
  - WALKING AID USER [None]
  - HIP FRACTURE [None]
